FAERS Safety Report 20055774 (Version 3)
Quarter: 2023Q1

REPORT INFORMATION
  Report Type: Report from Study
  Country: US (occurrence: US)
  Receive Date: 20211111
  Receipt Date: 20230307
  Transmission Date: 20230418
  Serious: No
  Sender: FDA-Public Use
  Company Number: US-BIOVITRUM-2021US10570

PATIENT
  Age: 33 Year
  Sex: Male

DRUGS (3)
  1. KINERET [Suspect]
     Active Substance: ANAKINRA
     Indication: Rheumatoid arthritis
     Dates: start: 20181113, end: 20211025
  2. KINERET [Suspect]
     Active Substance: ANAKINRA
     Dates: start: 202211
  3. KINERET [Suspect]
     Active Substance: ANAKINRA
     Dates: start: 20221104

REACTIONS (1)
  - Drug ineffective [Unknown]
